FAERS Safety Report 6018994-X (Version None)
Quarter: 2008Q4

REPORT INFORMATION
  Report Type: 
  Country: None (occurrence: None)
  Receive Date: 20081224
  Receipt Date: 20081222
  Transmission Date: 20090506
  Serious: Yes (Hospitalization)
  Sender: FDA-Public Use
  Company Number: AU-BRISTOL-MYERS SQUIBB COMPANY-14337810

PATIENT
  Age: 99 Year
  Sex: Male

DRUGS (5)
  1. CARBOPLATIN [Suspect]
     Route: 042
  2. ETOPOSIDE [Suspect]
     Dosage: FORMULATION : INJECTION
     Route: 042
  3. HOLOXAN PWDR INJ [Suspect]
     Indication: HODGKIN'S DISEASE
     Route: 042
     Dates: start: 20060731, end: 20060802
  4. BACTRIM DS [Concomitant]
  5. DIFLUCAN [Concomitant]

REACTIONS (2)
  - ENCEPHALOPATHY [None]
  - RENAL FAILURE ACUTE [None]
